FAERS Safety Report 7822983-X (Version None)
Quarter: 2011Q4

REPORT INFORMATION
  Report Type: 
  Country: None (occurrence: None)
  Receive Date: 20111018
  Receipt Date: 20101111
  Transmission Date: 20120403
  Serious: No
  Sender: FDA-Public Use
  Company Number: US-ASTRAZENECA-2010SE54213

PATIENT
  Sex: Female

DRUGS (1)
  1. SYMBICORT [Suspect]
     Indication: DYSPNOEA
     Dosage: BID
     Route: 055
     Dates: start: 20060101, end: 20060101

REACTIONS (3)
  - INFLAMMATION [None]
  - SPEECH DISORDER [None]
  - DRUG DOSE OMISSION [None]
